FAERS Safety Report 21307273 (Version 3)
Quarter: 2022Q4

REPORT INFORMATION
  Report Type: Report from Study
  Country: US (occurrence: US)
  Receive Date: 20220908
  Receipt Date: 20221217
  Transmission Date: 20230113
  Serious: Yes (Other)
  Sender: FDA-Public Use
  Company Number: US-002147023-NVSC2022US202213

PATIENT
  Sex: Female
  Weight: 75.296 kg

DRUGS (3)
  1. TREPROSTINIL [Suspect]
     Active Substance: TREPROSTINIL
     Indication: Pulmonary arterial hypertension
     Dosage: 35 NG/KG/MIN, CONT
     Route: 042
     Dates: start: 20220726
  2. TREPROSTINIL [Suspect]
     Active Substance: TREPROSTINIL
     Dosage: 35 NG/KG/ MIN, CONT
     Route: 042
  3. LETAIRIS [Concomitant]
     Active Substance: AMBRISENTAN
     Indication: Product used for unknown indication
     Dosage: UNK
     Route: 065

REACTIONS (4)
  - Endocarditis [Unknown]
  - Vascular device infection [Unknown]
  - Dyspnoea exertional [Not Recovered/Not Resolved]
  - Product use in unapproved indication [Unknown]
